FAERS Safety Report 9952438 (Version 1)
Quarter: 2014Q1

REPORT INFORMATION
  Report Type: Report from Study
  Country: US (occurrence: US)
  Receive Date: 20140304
  Receipt Date: 20140304
  Transmission Date: 20141002
  Serious: No
  Sender: FDA-Public Use
  Company Number: US-ABBVIE-13P-163-1073578-00

PATIENT
  Age: 58 Year
  Sex: Male

DRUGS (7)
  1. HUMIRA [Suspect]
     Indication: COLITIS ULCERATIVE
     Dates: start: 20130326
  2. PREDNISONE [Concomitant]
     Indication: COLITIS
     Dosage: 10 MG X 2 PER DAY (WILL REDUCE TO 1 PER DAY IN A WEEK)
     Route: 048
  3. LIALDA [Concomitant]
     Indication: COLITIS
     Dosage: 1.2 GRAM X 4 TABS DAILY
     Route: 048
  4. ASA [Concomitant]
     Indication: PRODUCT USED FOR UNKNOWN INDICATION
     Dosage: 325 MG DAILY
     Route: 048
  5. MULTIVITAMIN [Concomitant]
     Indication: PRODUCT USED FOR UNKNOWN INDICATION
     Dosage: DAILY
  6. VITAMIN C [Concomitant]
     Indication: PRODUCT USED FOR UNKNOWN INDICATION
     Dosage: 1000 MG DAILY
  7. VITAMIN D3 [Concomitant]
     Indication: PRODUCT USED FOR UNKNOWN INDICATION
     Dosage: 2000 IU DAILY
     Route: 048

REACTIONS (1)
  - Injection site bruising [Not Recovered/Not Resolved]
